FAERS Safety Report 5365736-7 (Version None)
Quarter: 2007Q2

REPORT INFORMATION
  Report Type: 
  Country: None (occurrence: None)
  Receive Date: 20070621
  Receipt Date: 20070614
  Transmission Date: 20071010
  Serious: Yes (Other)
  Sender: FDA-Public Use
  Company Number: ES-BOEHRINGER INGELHEIM PHARMACEUTICALS, INC.-2007-DE-03591GD

PATIENT

DRUGS (1)
  1. DIPYRIDAMOLE [Suspect]

REACTIONS (1)
  - CHOLESTASIS [None]
